FAERS Safety Report 8216101-6 (Version None)
Quarter: 2012Q1

REPORT INFORMATION
  Report Type: 
  Country: None (occurrence: None)
  Receive Date: 20120229
  Receipt Date: 20110722
  Transmission Date: 20120608
  Serious: Yes (Hospitalization)
  Sender: FDA-Public Use
  Company Number: PHHY2011US58062

PATIENT
  Age: 59 Year
  Sex: Female

DRUGS (15)
  1. NEORAL [Suspect]
     Indication: LIVER TRANSPLANT
     Dosage: 200 MG, BID, ORAL
     Route: 048
  2. CYCLOSPORINE [Suspect]
     Dosage: 100 MG, BID
  3. CALCIUM CARBONATE [Concomitant]
  4. MYCOSTATIN [Concomitant]
  5. PROGRAF [Concomitant]
  6. MYFORTIC [Suspect]
     Dosage: 720 MG, BID, ORAL
     Route: 048
  7. CALCITROL (CALCIUM CARBONATE, ERGOCALCIFEROL, RETINOL) [Suspect]
  8. TOPRIM/SULFAMETOXAZOLECOCRIM [Suspect]
  9. ANOPRAZOLE [Concomitant]
  10. AZATHIOPRINE [Suspect]
     Dosage: 50 MG, BID, ORAL
     Route: 048
  11. VITAMIN D [Concomitant]
  12. OMEPRAZOLE [Suspect]
     Dosage: 20 MG
  13. CALCIFEROL (ERGOCALCIFEROL) [Concomitant]
  14. NIFEDIPINE [Suspect]
     Dosage: 30 MG
  15. PREDNISONE TAB [Concomitant]

REACTIONS (2)
  - CHEST DISCOMFORT [None]
  - LIVER TRANSPLANT REJECTION [None]
